FAERS Safety Report 7535159-0 (Version None)
Quarter: 2011Q2

REPORT INFORMATION
  Report Type: 
  Country: None (occurrence: None)
  Receive Date: 20110609
  Receipt Date: 20090312
  Transmission Date: 20111010
  Serious: Yes (Death)
  Sender: FDA-Public Use
  Company Number: PHHY2009JP06226

PATIENT
  Sex: Male

DRUGS (4)
  1. ZOLEDRONIC ACID [Suspect]
     Indication: MULTIPLE MYELOMA
     Dosage: 4 MG, ONCE/SINGLE
     Route: 042
     Dates: start: 20080304
  2. DECADRON [Concomitant]
     Dosage: 4 MG
     Route: 042
     Dates: start: 20080305, end: 20080308
  3. DOXORUBICIN HYDROCHLORIDE [Concomitant]
     Dosage: 14 MG
     Route: 042
     Dates: start: 20080305, end: 20080308
  4. ONCOVIN [Concomitant]
     Dosage: 0.4 MG
     Route: 042
     Dates: start: 20080305, end: 20080308

REACTIONS (2)
  - MULTIPLE MYELOMA [None]
  - SEPSIS [None]
